FAERS Safety Report 6712977-X (Version None)
Quarter: 2010Q2

REPORT INFORMATION
  Report Type: 
  Country: None (occurrence: None)
  Receive Date: 20100505
  Receipt Date: 20100505
  Transmission Date: 20101027
  Serious: No
  Sender: FDA-Public Use
  Company Number: None

PATIENT
  Age: 58 Year
  Sex: Female
  Weight: 83.9154 kg

DRUGS (2)
  1. FOSAMAX [Suspect]
     Indication: OSTEONECROSIS
     Dates: start: 20000101, end: 20020102
  2. BONIVA [Suspect]
     Dates: start: 20020101, end: 20040101

REACTIONS (6)
  - BONE CYST [None]
  - BONE FRAGMENTATION [None]
  - DISEASE COMPLICATION [None]
  - FRACTURE NONUNION [None]
  - JOINT DISLOCATION [None]
  - OSTEONECROSIS [None]
